FAERS Safety Report 5441099-3 (Version None)
Quarter: 2007Q3

REPORT INFORMATION
  Report Type: 
  Country: None (occurrence: None)
  Receive Date: 20070831
  Receipt Date: 20070820
  Transmission Date: 20080115
  Serious: Yes (Hospitalization)
  Sender: FDA-Public Use
  Company Number: BR-PFIZER INC-2007056025

PATIENT
  Sex: Female

DRUGS (2)
  1. CELEBRA [Suspect]
     Indication: LOCALISED INFECTION
     Route: 048
     Dates: start: 20070705, end: 20070706
  2. ALL OTHER THERAPEUTIC PRODUCTS [Concomitant]

REACTIONS (4)
  - CARDIAC DISORDER [None]
  - DYSPNOEA [None]
  - HYPERSENSITIVITY [None]
  - NAUSEA [None]
